FAERS Safety Report 21538372 (Version 1)
Quarter: 2022Q4

REPORT INFORMATION
  Report Type: Spontaneous
  Country: US (occurrence: US)
  Receive Date: 20221102
  Receipt Date: 20221102
  Transmission Date: 20230113
  Serious: Yes (Death, Other)
  Sender: FDA-Public Use
  Company Number: US-BRISTOL-MYERS SQUIBB COMPANY-2022-128196

PATIENT
  Age: 83 Year
  Sex: Female
  Weight: 60.78 kg

DRUGS (5)
  1. REVLIMID [Suspect]
     Active Substance: LENALIDOMIDE
     Indication: Plasma cell myeloma
     Route: 048
     Dates: start: 20220726
  2. VELCADE [Concomitant]
     Active Substance: BORTEZOMIB
  3. LOSARTAN [Concomitant]
     Active Substance: LOSARTAN
  4. EZETIMIBE [Concomitant]
     Active Substance: EZETIMIBE
  5. LEVOTHYROXINE [Concomitant]
     Active Substance: LEVOTHYROXINE

REACTIONS (2)
  - Death [Fatal]
  - Off label use [Unknown]

NARRATIVE: CASE EVENT DATE: 20221025
